FAERS Safety Report 7597712-8 (Version None)
Quarter: 2011Q3

REPORT INFORMATION
  Report Type: 
  Country: None (occurrence: None)
  Receive Date: 20110708
  Receipt Date: 20110708
  Transmission Date: 20111222
  Serious: Yes (Death, Hospitalization)
  Sender: FDA-Public Use
  Company Number: US-GLAXOSMITHKLINE-A0935167A

PATIENT
  Age: 60 Year
  Sex: Female
  Weight: 95.9 kg

DRUGS (1)
  1. AVANDIA [Suspect]
     Indication: DIABETES MELLITUS
     Route: 048
     Dates: end: 20070131

REACTIONS (2)
  - CARDIAC ARREST [None]
  - RESPIRATORY FAILURE [None]
